FAERS Safety Report 8825953 (Version 1)
Quarter: 2012Q4

REPORT INFORMATION
  Report Type: 
  Country: US (occurrence: US)
  Receive Date: 20121005
  Receipt Date: 20121005
  Transmission Date: 20130627
  Serious: Yes (Other)
  Sender: FDA-Public Use
  Company Number: US-ROXANE LABORATORIES, INC.-2012-RO-01965RO

PATIENT
  Age: 69 None
  Sex: Male
  Weight: 83 kg

DRUGS (15)
  1. PREDNISONE [Suspect]
     Indication: CHRONIC OBSTRUCTIVE PULMONARY DISEASE
  2. BROVANA [Suspect]
     Indication: CHRONIC OBSTRUCTIVE PULMONARY DISEASE
     Route: 055
     Dates: start: 201208
  3. ZOLPIDEM [Concomitant]
  4. PROVENTIL [Concomitant]
  5. ASPIRIN [Concomitant]
  6. LANTUS [Concomitant]
  7. GABAPENTIN [Concomitant]
  8. NOVOLOG [Concomitant]
  9. SPIRIVA [Concomitant]
  10. ULTRAM [Concomitant]
  11. PRAVASTATIN [Concomitant]
  12. IPRATROPIUM/ALBULTEROL [Concomitant]
  13. RANITIDINE [Concomitant]
  14. MULTIVITAMINS [Concomitant]
  15. OMEPRAZOLE [Concomitant]

REACTIONS (3)
  - Dyspnoea [Unknown]
  - Joint swelling [Not Recovered/Not Resolved]
  - Oedema peripheral [Not Recovered/Not Resolved]
